FAERS Safety Report 7818624-8 (Version None)
Quarter: 2011Q4

REPORT INFORMATION
  Report Type: 
  Country: None (occurrence: None)
  Receive Date: 20111017
  Receipt Date: 20111004
  Transmission Date: 20120403
  Serious: Yes (Hospitalization)
  Sender: FDA-Public Use
  Company Number: DE-UCBSA-042775

PATIENT
  Age: 79 Year
  Sex: Female
  Weight: 65 kg

DRUGS (3)
  1. L-DOPA/CARBIDOPA [Concomitant]
     Indication: PARKINSON'S DISEASE
     Dosage: 300 MG
     Dates: start: 20031008
  2. ROTIGOTINE [Suspect]
     Indication: PARKINSON'S DISEASE
     Dosage: 3 MG
     Route: 062
     Dates: start: 20110614
  3. PIRIBEDIL [Concomitant]
     Indication: PARKINSON'S DISEASE
     Dosage: 100 MG
     Dates: start: 20110308

REACTIONS (1)
  - GASTRIC ULCER [None]
